FAERS Safety Report 9950718 (Version 1)
Quarter: 2014Q1

REPORT INFORMATION
  Report Type: Spontaneous
  Country: JP (occurrence: JP)
  Receive Date: 20140304
  Receipt Date: 20140304
  Transmission Date: 20141002
  Serious: Yes (Hospitalization, Other)
  Sender: FDA-Public Use
  Company Number: JP-WATSON-2014-03234

PATIENT
  Age: 45 Year
  Sex: Male

DRUGS (5)
  1. TEMOZOLOMIDE (UNKNOWN) [Suspect]
     Indication: GLIOBLASTOMA
     Dosage: 75 MG/M2, DAILY
     Route: 065
  2. PREDNISOLONE (UNKNOWN) [Suspect]
     Indication: BRAIN OEDEMA
     Dosage: 15 MG, DAILY
     Route: 065
  3. PREDNISOLONE (UNKNOWN) [Suspect]
     Dosage: 20 MG, DAILY
     Route: 065
  4. PREDNISOLONE (UNKNOWN) [Suspect]
     Dosage: 40 MG, DAILY
     Route: 065
  5. PREDNISOLONE (UNKNOWN) [Suspect]
     Dosage: 10 MG, DAILY
     Route: 065

REACTIONS (5)
  - Cytomegalovirus hepatitis [Recovered/Resolved]
  - Cytomegalovirus infection [Recovered/Resolved]
  - Lymphopenia [Recovered/Resolved]
  - Neutropenia [Recovered/Resolved]
  - Leukopenia [Recovered/Resolved]
